FAERS Safety Report 7834028 (Version 7)
Quarter: 2012Q4

REPORT INFORMATION
  Report Type: Report from Study
  Country: JP (occurrence: JP)
  Receive Date: 20110228
  Receipt Date: 20121107
  Transmission Date: 20130627
  Serious: Yes (Hospitalization, Other)
  Sender: FDA-Public Use
  Company Number: JP-CELGENEUS-087-21880-10121088

PATIENT
  Sex: Female

DRUGS (70)
  1. REVLIMID [Suspect]
     Indication: MULTIPLE MYELOMA
     Dosage: 25 Milligram
     Route: 048
     Dates: start: 20100729, end: 20100819
  2. REVLIMID [Suspect]
     Dosage: 25 Milligram
     Route: 048
     Dates: start: 20100827, end: 20100906
  3. REVLIMID [Suspect]
     Dosage: 15 Milligram
     Route: 048
     Dates: start: 20100908, end: 20100914
  4. REVLIMID [Suspect]
     Dosage: 10 Milligram
     Route: 048
     Dates: start: 20101004, end: 20101025
  5. REVLIMID [Suspect]
     Dosage: 10 Milligram
     Route: 048
     Dates: start: 20101101, end: 20101121
  6. REVLIMID [Suspect]
     Dosage: 10 Milligram
     Route: 048
     Dates: start: 20110113, end: 20110203
  7. REVLIMID [Suspect]
     Dosage: 10 Milligram
     Route: 048
     Dates: start: 20110209, end: 20110301
  8. REVLIMID [Suspect]
     Dosage: 10 Milligram
     Route: 048
     Dates: start: 20110309, end: 20110322
  9. REVLIMID [Suspect]
     Dosage: 10 Milligram
     Route: 048
     Dates: start: 20110330, end: 20110419
  10. REVLIMID [Suspect]
     Dosage: 10 Milligram
     Route: 048
     Dates: start: 20110518, end: 20110607
  11. REVLIMID [Suspect]
     Dosage: 10 Milligram
     Route: 048
     Dates: start: 20110615, end: 20110702
  12. LENADEX [Suspect]
     Indication: MULTIPLE MYELOMA
     Dosage: 4 Milligram
     Route: 048
     Dates: start: 20110113, end: 20110210
  13. LENADEX [Suspect]
     Dosage: 4 Milligram
     Route: 048
     Dates: start: 20110211, end: 20110308
  14. LENADEX [Suspect]
     Dosage: 16 Milligram
     Route: 048
     Dates: start: 20110309, end: 20110322
  15. ENDOXAN [Suspect]
     Indication: MULTIPLE MYELOMA
     Dosage: 100 Milligram
     Route: 048
     Dates: start: 20110330, end: 20110414
  16. ENDOXAN [Suspect]
     Dosage: 50 Milligram
     Route: 048
     Dates: start: 20110415, end: 20110416
  17. ENDOXAN [Suspect]
     Dosage: 50 Milligram
     Route: 048
     Dates: start: 20110615, end: 20110702
  18. PREDONINE [Suspect]
     Indication: MULTIPLE MYELOMA
     Dosage: 20 Milligram
     Route: 048
     Dates: start: 20110330, end: 20110419
  19. PREDONINE [Suspect]
     Dosage: 20 Milligram
     Route: 048
     Dates: start: 20110518, end: 20110702
  20. PREDONINE [Suspect]
     Dosage: 20 Milligram
     Route: 048
     Dates: start: 20110720, end: 20110729
  21. HYPEN [Suspect]
     Indication: MULTIPLE MYELOMA
     Dosage: 400 Milligram
     Route: 048
     Dates: start: 20100729, end: 20100924
  22. HYPEN [Suspect]
     Dosage: 400 Milligram
     Route: 048
     Dates: start: 20101001, end: 20101201
  23. DECADRON [Concomitant]
     Indication: MULTIPLE MYELOMA
     Dosage: 8 Milligram
     Route: 048
     Dates: start: 20100810, end: 20100819
  24. DECADRON [Concomitant]
     Dosage: 1 Milligram
     Route: 048
     Dates: start: 20100820, end: 20100902
  25. DECADRON [Concomitant]
     Dosage: 1 Milligram
     Route: 048
     Dates: start: 20100904, end: 20100907
  26. DECADRON [Concomitant]
     Dosage: 1 Milligram
     Route: 048
     Dates: start: 20101004, end: 20110112
  27. DEXART [Concomitant]
     Indication: MULTIPLE MYELOMA
     Dosage: 4A
     Route: 041
     Dates: start: 20100730, end: 20100730
  28. DEXART [Concomitant]
     Dosage: 0.5A
     Route: 041
     Dates: start: 20100731, end: 20100803
  29. DEXART [Concomitant]
     Dosage: 0.5A
     Route: 041
     Dates: start: 20100804, end: 20100809
  30. DEXART [Concomitant]
     Dosage: 33 Milligram
     Route: 041
     Dates: start: 20100827, end: 20100827
  31. DEXART [Concomitant]
     Dosage: 33 Milligram
     Route: 041
     Dates: start: 20100903, end: 20100903
  32. DEXART [Concomitant]
     Dosage: 20 Milligram
     Route: 041
     Dates: start: 20110703, end: 20110710
  33. DEXART [Concomitant]
     Dosage: 8 Milligram
     Route: 041
     Dates: start: 20110711, end: 20110717
  34. DEXART [Concomitant]
     Dosage: 4 Milligram
     Route: 041
     Dates: start: 20110718, end: 20110719
  35. OMEPRAZON [Concomitant]
     Indication: PROPHYLAXIS
     Dosage: 20 Milligram
     Route: 048
     Dates: start: 20100729, end: 20100924
  36. OMEPRAZON [Concomitant]
     Dosage: 20 Milligram
     Route: 048
     Dates: start: 20101004, end: 20110210
  37. OMEPRAZON [Concomitant]
     Dosage: 20 Milligram
     Route: 048
     Dates: start: 20110209, end: 20110729
  38. MAGLAX [Concomitant]
     Indication: PROPHYLAXIS
     Dosage: 1500 Milligram
     Route: 048
     Dates: start: 20100729, end: 20100924
  39. MAGLAX [Concomitant]
     Dosage: 1500 Milligram
     Route: 048
     Dates: start: 20101005, end: 20101031
  40. MAGLAX [Concomitant]
     Dosage: 1500 Milligram
     Route: 048
     Dates: start: 20110209, end: 20110729
  41. TRYPTANOL [Concomitant]
     Indication: DRUG USE FOR UNKNOWN INDICATION
     Dosage: 50 Milligram
     Route: 048
     Dates: start: 20100729, end: 20100924
  42. TRYPTANOL [Concomitant]
     Dosage: 50 Milligram
     Route: 048
     Dates: start: 20101001, end: 20110210
  43. TRYPTANOL [Concomitant]
     Dosage: 25 Milligram
     Route: 048
     Dates: start: 20110209, end: 20110729
  44. BAYASPIRIN [Concomitant]
     Indication: PROPHYLAXIS
     Dosage: 100 Milligram
     Route: 048
     Dates: start: 20100729, end: 20100924
  45. BAYASPIRIN [Concomitant]
     Dosage: 100 Milligram
     Route: 048
     Dates: start: 20101001, end: 20101201
  46. BISOLVON [Concomitant]
     Indication: PROPHYLAXIS
     Dosage: QL
     Route: 055
     Dates: start: 20100724, end: 20100724
  47. OXYCONTIN [Concomitant]
     Indication: MULTIPLE MYELOMA
     Dosage: 30 Milligram
     Route: 048
     Dates: start: 20100726, end: 20100801
  48. OXYCONTIN [Concomitant]
     Dosage: 20 Milligram
     Route: 048
     Dates: start: 20100802, end: 20100808
  49. OXYCONTIN [Concomitant]
     Dosage: 15 Milligram
     Route: 048
     Dates: start: 20100809, end: 20100815
  50. OXYCONTIN [Concomitant]
     Dosage: 10 Milligram
     Route: 048
     Dates: start: 20100816, end: 20100822
  51. OXYCONTIN [Concomitant]
     Dosage: 10 Milligram
     Route: 048
     Dates: start: 20100827, end: 20100924
  52. OXYCONTIN [Concomitant]
     Dosage: 10 Milligram
     Route: 048
     Dates: start: 20101004, end: 20110210
  53. OXYCONTIN [Concomitant]
     Dosage: 20 Milligram
     Route: 048
     Dates: start: 20110209, end: 20110308
  54. OXYCONTIN [Concomitant]
     Dosage: 30 Milligram
     Route: 048
     Dates: start: 20110309, end: 20110410
  55. OXYCONTIN [Concomitant]
     Dosage: 20 Milligram
     Route: 048
     Dates: start: 20110411, end: 20110729
  56. ZOMETA [Concomitant]
     Indication: PROPHYLAXIS
     Dosage: 4 Milligram
     Route: 041
     Dates: start: 20100820, end: 20100820
  57. KARY UNI [Concomitant]
     Indication: PROPHYLAXIS
     Dosage: QL
     Route: 047
     Dates: start: 20100825, end: 20100825
  58. KARY UNI [Concomitant]
     Dosage: QL
     Route: 047
     Dates: start: 20100827, end: 20100924
  59. KARY UNI [Concomitant]
     Dosage: QL
     Route: 047
     Dates: start: 20101004, end: 20101215
  60. VALIXA [Concomitant]
     Indication: PROPHYLAXIS
     Dosage: 900 Milligram
     Route: 048
     Dates: start: 20100917, end: 20100918
  61. ALLOID G [Concomitant]
     Indication: PROPHYLAXIS
     Dosage: 60 milliliter
     Route: 048
     Dates: start: 20101213, end: 20101226
  62. OXINORM [Concomitant]
     Indication: MULTIPLE MYELOMA
     Dosage: 5 Milligram
     Route: 048
     Dates: start: 20110209, end: 20110308
  63. OXINORM [Concomitant]
     Dosage: 10 Milligram
     Route: 048
     Dates: start: 20110309, end: 20110318
  64. OXINORM [Concomitant]
     Dosage: 7.5 Milligram
     Route: 048
     Dates: start: 20110323, end: 20110614
  65. OXINORM [Concomitant]
     Dosage: 5 Milligram
     Route: 048
     Dates: start: 20110615, end: 20110729
  66. PETROLATUM [Concomitant]
     Indication: PROPHYLAXIS
     Dosage: adequate dose
     Route: 061
     Dates: start: 20110209, end: 20110729
  67. SOLU-CORTEF [Concomitant]
     Indication: PROPHYLAXIS
     Dosage: 100 Milligram
     Route: 041
     Dates: start: 20110704, end: 20110704
  68. KAYTWO N [Concomitant]
     Indication: PROPHYLAXIS
     Dosage: 10 Milligram
     Route: 041
     Dates: start: 20110703, end: 20110707
  69. GRAN [Concomitant]
     Indication: PROPHYLAXIS
     Dosage: 75 Microgram
     Route: 030
     Dates: start: 20110703, end: 20110710
  70. PLATELET CONCENTRATE [Concomitant]
     Indication: MULTIPLE MYELOMA
     Route: 041
     Dates: start: 20110429, end: 20110429

REACTIONS (21)
  - Duodenal ulcer [Recovering/Resolving]
  - Gastric ulcer [Recovering/Resolving]
  - Interstitial lung disease [Recovered/Resolved]
  - Haemoglobin decreased [Recovering/Resolving]
  - Hypokalaemia [Recovered/Resolved]
  - Platelet count decreased [Recovered/Resolved]
  - Pneumonia [Unknown]
  - Hypokalaemia [Recovered/Resolved]
  - Platelet count decreased [Recovered/Resolved]
  - White blood cell count decreased [Recovered/Resolved]
  - Thrombocytopenia [Recovered/Resolved]
  - Neutrophil count decreased [Recovered/Resolved]
  - White blood cell count decreased [Recovered/Resolved]
  - Pyrexia [Recovered/Resolved]
  - Pneumonia [Recovered/Resolved]
  - Decubitus ulcer [Recovering/Resolving]
  - Stomatitis [Recovering/Resolving]
  - Pharyngitis [Recovering/Resolving]
  - Constipation [Recovered/Resolved]
  - Leukopenia [Recovered/Resolved]
  - Pyrexia [Recovered/Resolved]
